FAERS Safety Report 25319884 (Version 1)
Quarter: 2025Q2

REPORT INFORMATION
  Report Type: Report from Study
  Country: US (occurrence: US)
  Receive Date: 20250515
  Receipt Date: 20250515
  Transmission Date: 20250716
  Serious: Yes (Other)
  Sender: NOVARTIS
  Company Number: US-002147023-NVSC2024US170089

PATIENT
  Age: 59 Year
  Sex: Female

DRUGS (3)
  1. KESIMPTA [Suspect]
     Active Substance: OFATUMUMAB
     Indication: Product used for unknown indication
     Dosage: 20 MG, QMO
     Route: 058
     Dates: start: 20211202
  2. KESIMPTA [Suspect]
     Active Substance: OFATUMUMAB
     Route: 065
  3. KESIMPTA [Suspect]
     Active Substance: OFATUMUMAB
     Dosage: 20 MG, QMO
     Route: 058

REACTIONS (13)
  - Compression fracture [Unknown]
  - Renal failure [Not Recovered/Not Resolved]
  - Sepsis [Unknown]
  - Hallucination [Unknown]
  - Loss of consciousness [Unknown]
  - Skin infection [Unknown]
  - Cerebral disorder [Unknown]
  - Cerebral ataxia [Unknown]
  - Skin lesion [Unknown]
  - Cellulitis [Unknown]
  - Tachycardia [Unknown]
  - Disorientation [Unknown]
  - Dyspnoea [Unknown]

NARRATIVE: CASE EVENT DATE: 20211202
